FAERS Safety Report 7197750-3 (Version None)
Quarter: 2010Q4

REPORT INFORMATION
  Report Type: 
  Country: None (occurrence: None)
  Receive Date: 20101227
  Receipt Date: 20101214
  Transmission Date: 20110411
  Serious: Yes (Hospitalization)
  Sender: FDA-Public Use
  Company Number: US-ELI_LILLY_AND_COMPANY-US201012003743

PATIENT
  Sex: Female

DRUGS (9)
  1. FORTEO [Suspect]
     Indication: OSTEOPOROSIS
     Dosage: 20 UG, DAILY (1/D)
     Dates: end: 20101201
  2. FORTEO [Suspect]
     Dosage: 20 UG, DAILY (1/D)
     Dates: start: 20101213
  3. PLAVIX [Concomitant]
     Dosage: 75 MG, UNK
  4. LIPITOR [Concomitant]
     Dosage: 20 MG, UNK
  5. CEFPROZIL [Concomitant]
     Dosage: 50 MG, UNK
  6. CALCITRIOL [Concomitant]
     Dosage: 25 MG, UNK
  7. LASIX [Concomitant]
     Dosage: 40 MG, UNK
  8. NORVASC [Concomitant]
  9. FAMOTIDINE [Concomitant]

REACTIONS (5)
  - KIDNEY INFECTION [None]
  - PAIN [None]
  - PNEUMONIA [None]
  - SINUSITIS [None]
  - THYROID DISORDER [None]
